FAERS Safety Report 7442912-0 (Version None)
Quarter: 2011Q2

REPORT INFORMATION
  Report Type: 
  Country: None (occurrence: None)
  Receive Date: 20110428
  Receipt Date: 20110422
  Transmission Date: 20111010
  Serious: Yes (Hospitalization)
  Sender: FDA-Public Use
  Company Number: US-GILEAD-2011-0035144

PATIENT
  Sex: Female

DRUGS (12)
  1. REVATIO [Concomitant]
  2. LETAIRIS [Suspect]
     Indication: SCLERODERMA
  3. WARFARIN [Concomitant]
  4. DEXILANT [Concomitant]
  5. PANTOPRAZOLE [Concomitant]
  6. METHOTREXATE [Concomitant]
  7. ZOLPIDEM [Concomitant]
  8. FERROUS SULFATE TAB [Concomitant]
  9. LETAIRIS [Suspect]
     Indication: PULMONARY HYPERTENSION
     Route: 048
     Dates: start: 20080926
  10. POTASSIUM CHLORIDE [Concomitant]
  11. COREG [Concomitant]
  12. LASIX [Concomitant]

REACTIONS (2)
  - PNEUMONIA [None]
  - HYPOTENSION [None]
